FAERS Safety Report 4907787-X (Version None)
Quarter: 2006Q1

REPORT INFORMATION
  Report Type: 
  Country: None (occurrence: None)
  Receive Date: 20060210
  Receipt Date: 20060119
  Transmission Date: 20060701
  Serious: Yes (Life-Threatening, Hospitalization, Other)
  Sender: FDA-Public Use
  Company Number: US-BRISTOL-MYERS SQUIBB COMPANY-13252259

PATIENT
  Age: 68 Year
  Sex: Male

DRUGS (8)
  1. CISPLATIN [Suspect]
     Indication: NON-SMALL CELL LUNG CANCER
     Route: 041
     Dates: start: 20051230, end: 20051230
  2. TS-1 [Suspect]
     Indication: NON-SMALL CELL LUNG CANCER
     Route: 048
     Dates: start: 20051230, end: 20060112
  3. ZESTORETIC [Concomitant]
     Indication: HYPERTENSION
     Route: 048
     Dates: start: 19980101
  4. LIPITOR [Concomitant]
     Indication: HYPERCHOLESTEROLAEMIA
     Route: 048
     Dates: start: 20020101
  5. ASPIRIN [Concomitant]
     Indication: PROPHYLAXIS
     Route: 048
     Dates: start: 19980101
  6. XANAX [Concomitant]
     Indication: ANXIETY
     Route: 048
     Dates: start: 20051201
  7. IMODIUM [Concomitant]
     Indication: DIARRHOEA
     Route: 048
     Dates: start: 20060107
  8. LEVAQUIN [Concomitant]
     Indication: PYREXIA
     Route: 048
     Dates: start: 20060107

REACTIONS (6)
  - FEBRILE NEUTROPENIA [None]
  - HYPONATRAEMIA [None]
  - HYPOVOLAEMIA [None]
  - PANCYTOPENIA [None]
  - PYREXIA [None]
  - SEPSIS [None]
